FAERS Safety Report 9154702 (Version 1)
Quarter: 2013Q1

REPORT INFORMATION
  Report Type: Report from Study
  Country: US (occurrence: US)
  Receive Date: 20130311
  Receipt Date: 20130311
  Transmission Date: 20140127
  Serious: No
  Sender: FDA-Public Use
  Company Number: US-ABBOTT-12P-163-0995321-00

PATIENT
  Age: 36 Year
  Sex: Female
  Weight: 60.84 kg

DRUGS (3)
  1. LUPRON DEPOT [Suspect]
     Indication: ENDOMETRIOSIS
     Route: 030
     Dates: start: 20120918
  2. NORETHINDRONE ACETATE [Concomitant]
     Indication: PRODUCT USED FOR UNKNOWN INDICATION
     Dosage: 5MG DAILY
     Route: 048
  3. TWO UNKNOWN MEDICATIONS [Concomitant]
     Indication: BLOOD CHOLESTEROL INCREASED

REACTIONS (4)
  - Adnexa uteri pain [Recovering/Resolving]
  - Vaginal oedema [Recovering/Resolving]
  - Vaginal haemorrhage [Recovering/Resolving]
  - Menstruation irregular [Recovering/Resolving]
